FAERS Safety Report 23701645 (Version 1)
Quarter: 2024Q2

REPORT INFORMATION
  Report Type: Spontaneous
  Country: ZA (occurrence: None)
  Receive Date: 20240403
  Receipt Date: 20240403
  Transmission Date: 20240715
  Serious: Yes (Hospitalization, Other)
  Sender: FDA-Public Use
  Company Number: 2024A075749

PATIENT
  Age: 78 Year
  Sex: Female

DRUGS (5)
  1. BUDESONIDE\FORMOTEROL [Suspect]
     Active Substance: BUDESONIDE\FORMOTEROL
     Indication: Asthma
     Dosage: 120, UNKNOWN UNKNOWN
     Route: 055
  2. SILDENAFIL CITRATE [Concomitant]
     Active Substance: SILDENAFIL CITRATE
     Indication: Product used for unknown indication
     Route: 048
  3. NOVORAPID FLEXPEN PENSET [Concomitant]
     Indication: Diabetes mellitus
     Route: 058
  4. TRESIBA [Concomitant]
     Active Substance: INSULIN DEGLUDEC
     Indication: Diabetes mellitus
     Route: 058
  5. EZETIMIBE [Concomitant]
     Active Substance: EZETIMIBE
     Indication: Blood cholesterol
     Route: 048

REACTIONS (7)
  - Overdose [Unknown]
  - Cerebrovascular accident [Unknown]
  - Pneumonia [Unknown]
  - Feeling abnormal [Unknown]
  - Eating disorder [Unknown]
  - Bile acids increased [Unknown]
  - Urinary tract infection [Unknown]
